FAERS Safety Report 6139649-7 (Version None)
Quarter: 2009Q2

REPORT INFORMATION
  Report Type: 
  Country: None (occurrence: None)
  Receive Date: 20090401
  Receipt Date: 20090217
  Transmission Date: 20091009
  Serious: No
  Sender: FDA-Public Use
  Company Number: US-BAYER-200910949BCC

PATIENT
  Age: 27 Year
  Sex: Male

DRUGS (3)
  1. ALEVE (CAPLET) [Suspect]
     Indication: BACK PAIN
     Dosage: TOTAL DAILY DOSE: 4840 MG  UNIT DOSE: 220 MG
     Route: 048
     Dates: start: 20090217
  2. LORTAB [Concomitant]
  3. MUSCLE RELAXANT [Concomitant]

REACTIONS (1)
  - NO ADVERSE EVENT [None]
